FAERS Safety Report 7158324-3 (Version None)
Quarter: 2010Q4

REPORT INFORMATION
  Report Type: 
  Country: None (occurrence: None)
  Receive Date: 20101214
  Receipt Date: 20101207
  Transmission Date: 20110411
  Serious: Yes (Hospitalization)
  Sender: FDA-Public Use
  Company Number: US-US-EMD SERONO, INC.-7022256

PATIENT
  Sex: Female

DRUGS (1)
  1. REBIF [Suspect]
     Indication: MULTIPLE SCLEROSIS
     Route: 058
     Dates: start: 20091203

REACTIONS (5)
  - CONSTIPATION [None]
  - MULTIPLE SCLEROSIS RELAPSE [None]
  - OESOPHAGITIS ULCERATIVE [None]
  - PYREXIA [None]
  - VOMITING [None]
